FAERS Safety Report 6812901-5 (Version None)
Quarter: 2010Q3

REPORT INFORMATION
  Report Type: 
  Country: None (occurrence: None)
  Receive Date: 20100701
  Receipt Date: 20100621
  Transmission Date: 20110219
  Serious: Yes (Hospitalization)
  Sender: FDA-Public Use
  Company Number: IL-MYLANLABS-2010S1010945

PATIENT
  Age: 16 Year
  Sex: Female

DRUGS (2)
  1. SIMVASTATIN [Suspect]
     Indication: OVERDOSE
     Route: 065
  2. METFORMIN HCL [Suspect]
     Indication: OVERDOSE
     Route: 065

REACTIONS (4)
  - DIABETES INSIPIDUS [None]
  - OVERDOSE [None]
  - PANCREATITIS [None]
  - RENAL FAILURE [None]
